FAERS Safety Report 4568864-9 (Version None)
Quarter: 2005Q1

REPORT INFORMATION
  Report Type: 
  Country: None (occurrence: None)
  Receive Date: 20050113
  Receipt Date: 20050113
  Transmission Date: 20050727
  Serious: Yes (Other)
  Sender: FDA-Public Use
  Company Number: None

PATIENT
  Age: 35 Year
  Sex: Female

DRUGS (2)
  1. LORAZEPAM [Suspect]
     Indication: PANIC DISORDER WITH AGORAPHOBIA
     Dosage: PO 1 MG QID AND ONE BID PRN ANXIETY
     Route: 048
  2. PAXIL CR [Concomitant]

REACTIONS (1)
  - DRUG INEFFECTIVE [None]
